FAERS Safety Report 6333485-4 (Version None)
Quarter: 2009Q3

REPORT INFORMATION
  Report Type: 
  Country: None (occurrence: None)
  Receive Date: 20090828
  Receipt Date: 20090820
  Transmission Date: 20100115
  Serious: Yes (Hospitalization)
  Sender: FDA-Public Use
  Company Number: DE-AMGEN-US361536

PATIENT
  Age: 65 Year
  Sex: Female

DRUGS (3)
  1. ENBREL [Suspect]
     Indication: RHEUMATOID ARTHRITIS
     Route: 058
     Dates: start: 20070901, end: 20090801
  2. CORTISONE [Concomitant]
  3. ARAVA [Concomitant]
     Dosage: UNKNOWN

REACTIONS (2)
  - ARRHYTHMIA [None]
  - URINARY TRACT INFECTION [None]
